FAERS Safety Report 11295100 (Version 1)
Quarter: 2015Q3

REPORT INFORMATION
  Report Type: Spontaneous
  Country: PT (occurrence: PT)
  Receive Date: 20150723
  Receipt Date: 20150723
  Transmission Date: 20151125
  Serious: Yes (Hospitalization)
  Sender: FDA-Public Use
  Company Number: PT-ROCHE-1611159

PATIENT
  Age: 62 Year
  Sex: Female

DRUGS (2)
  1. LORATADINA [Concomitant]
     Active Substance: LORATADINE
     Route: 048
     Dates: start: 201506
  2. ZELBORAF [Suspect]
     Active Substance: VEMURAFENIB
     Indication: MALIGNANT MELANOMA
     Route: 048
     Dates: start: 20150527, end: 201506

REACTIONS (5)
  - Chills [Recovered/Resolved]
  - Pyrexia [Recovered/Resolved]
  - Dysphagia [Recovered/Resolved]
  - Erythema [Recovered/Resolved]
  - Skin exfoliation [Recovered/Resolved]

NARRATIVE: CASE EVENT DATE: 20150605
